FAERS Safety Report 16357581 (Version 1)
Quarter: 2019Q2

REPORT INFORMATION
  Report Type: Spontaneous
  Country: CN (occurrence: CN)
  Receive Date: 20190527
  Receipt Date: 20190527
  Transmission Date: 20190711
  Serious: Yes (Other)
  Sender: FDA-Public Use
  Company Number: CN-ACCORD-128246

PATIENT
  Age: 33 Year
  Sex: Female

DRUGS (5)
  1. CISPLATIN. [Suspect]
     Active Substance: CISPLATIN
     Indication: NASOPHARYNGEAL CANCER RECURRENT
     Dosage: ON D1, REPEATED EVERY 3 WEEKS
  2. CETUXIMAB. [Suspect]
     Active Substance: CETUXIMAB
     Indication: NASOPHARYNGEAL CANCER RECURRENT
     Dosage: ON DAY 1 FROM THE SECOND TO NINTH WEEK, REPEATED EVERY WEEK
  3. FLUOROURACIL. [Suspect]
     Active Substance: FLUOROURACIL
     Indication: NASOPHARYNGEAL CANCER RECURRENT
     Dosage: ON D1-5, REPEATED EVERY 3 WEEKS
  4. CETUXIMAB. [Suspect]
     Active Substance: CETUXIMAB
     Indication: NASOPHARYNGEAL CANCER RECURRENT
     Dosage: ON DAY 1 AT THE FIRST WEEK, REPEATED EVERY WEEK?ALSO 250 MG PER M2
  5. DOCETAXEL. [Suspect]
     Active Substance: DOCETAXEL
     Indication: NASOPHARYNGEAL CANCER RECURRENT
     Dosage: ON D1, REPEATED EVERY 3 WEEKS

REACTIONS (5)
  - Vomiting [Unknown]
  - Nausea [Unknown]
  - Bone marrow failure [Recovered/Resolved]
  - Mucosal inflammation [Recovered/Resolved]
  - Dermatitis [Recovered/Resolved]
